FAERS Safety Report 9174314 (Version 1)
Quarter: 2013Q1

REPORT INFORMATION
  Report Type: Spontaneous
  Country: GB (occurrence: GB)
  Receive Date: 20130320
  Receipt Date: 20130320
  Transmission Date: 20140127
  Serious: Yes (Hospitalization)
  Sender: FDA-Public Use
  Company Number: PHHY2013GB024614

PATIENT
  Age: 39 Year
  Sex: Male
  Weight: 63.5 kg

DRUGS (1)
  1. DICLOFENAC [Suspect]
     Indication: BACK PAIN
     Dosage: 100 MG, QD
     Route: 048
     Dates: start: 20000925, end: 20001005

REACTIONS (3)
  - Large intestinal stenosis [Not Recovered/Not Resolved]
  - Abdominal symptom [Unknown]
  - Anal ulcer [Recovered/Resolved]
